FAERS Safety Report 8908555 (Version 1)
Quarter: 2012Q4

REPORT INFORMATION
  Report Type: 
  Country: US (occurrence: US)
  Receive Date: 20121114
  Receipt Date: 20121114
  Transmission Date: 20130627
  Serious: Yes (Other)
  Sender: FDA-Public Use
  Company Number: US-ROCHE-1155413

PATIENT
  Age: 63 Year
  Sex: Female

DRUGS (3)
  1. RITUXIMAB [Suspect]
     Indication: GRANULOMA
     Route: 065
  2. PREDNISONE [Concomitant]
     Route: 065
  3. PREDNISONE [Concomitant]
     Route: 065

REACTIONS (1)
  - Breast cancer [Unknown]
